FAERS Safety Report 15520164 (Version 1)
Quarter: 2018Q4

REPORT INFORMATION
  Report Type: Spontaneous
  Country: JP (occurrence: JP)
  Receive Date: 20181017
  Receipt Date: 20181017
  Transmission Date: 20190205
  Serious: Yes (Other)
  Sender: FDA-Public Use
  Company Number: JP-PFIZER INC-2018412698

PATIENT
  Age: 79 Year
  Sex: Male

DRUGS (5)
  1. TOVIAZ [Suspect]
     Active Substance: FESOTERODINE FUMARATE
     Indication: HYPERTONIC BLADDER
     Dosage: UNK
     Route: 048
  2. FLIVAS [Concomitant]
     Active Substance: NAFTOPIDIL
  3. SYMBICORT [Concomitant]
     Active Substance: BUDESONIDE\FORMOTEROL FUMARATE DIHYDRATE
  4. BETANIS [Concomitant]
     Active Substance: MIRABEGRON
  5. BILANOA [Concomitant]
     Active Substance: BILASTINE

REACTIONS (1)
  - Ileus paralytic [Unknown]
